FAERS Safety Report 16528893 (Version 2)
Quarter: 2020Q4

REPORT INFORMATION
  Report Type: Spontaneous
  Country: US (occurrence: US)
  Receive Date: 20190703
  Receipt Date: 20201012
  Transmission Date: 20210113
  Serious: Yes (Hospitalization)
  Sender: FDA-Public Use
  Company Number: US-IMPAX LABORATORIES, LLC-2019-IPXL-01342

PATIENT
  Age: 69 Year
  Sex: Female

DRUGS (4)
  1. RYTARY [Suspect]
     Active Substance: CARBIDOPA\LEVODOPA
     Indication: PRODUCT USED FOR UNKNOWN INDICATION
     Dosage: 3 CAPSULES, 4X/DAY (AT 7AM, 12PM, 5PM, AND 10PM)
     Route: 048
  2. RYTARY [Suspect]
     Active Substance: CARBIDOPA\LEVODOPA
     Dosage: 3 CAPSULES, 5X/DAY (AT 7AM, 10AM, 1PM, 4PM, AND 7PM)
     Route: 048
     Dates: start: 20200505, end: 2020
  3. RYTARY [Suspect]
     Active Substance: CARBIDOPA\LEVODOPA
     Dosage: 3 CAPSULES, 4 /DAY (AT 7AM, 10AM, 1PM, AND 4PM)
     Route: 048
     Dates: start: 2020
  4. CARBIDOPA LEVODOPA [Concomitant]
     Active Substance: CARBIDOPA\LEVODOPA
     Indication: PRODUCT USED FOR UNKNOWN INDICATION
     Dosage: UNK
     Route: 065

REACTIONS (1)
  - Adverse event [Unknown]

NARRATIVE: CASE EVENT DATE: 20190626
